FAERS Safety Report 7113476-6 (Version None)
Quarter: 2010Q4

REPORT INFORMATION
  Report Type: 
  Country: None (occurrence: None)
  Receive Date: 20101119
  Receipt Date: 20101115
  Transmission Date: 20110411
  Serious: Yes (Other)
  Sender: FDA-Public Use
  Company Number: US-TEVA-255593USA

PATIENT
  Age: 37 Year
  Sex: Female

DRUGS (3)
  1. COPAXONE [Suspect]
     Indication: MULTIPLE SCLEROSIS
     Route: 058
     Dates: start: 20101021, end: 20101021
  2. AMITRIPTYLINE HYDROCHLORIDE [Concomitant]
  3. ELETRIPTAN HYDROBROMIDE [Concomitant]

REACTIONS (1)
  - OPTIC NEURITIS [None]
